FAERS Safety Report 8053235-3 (Version None)
Quarter: 2012Q1

REPORT INFORMATION
  Report Type: 
  Country: None (occurrence: None)
  Receive Date: 20120118
  Receipt Date: 20120109
  Transmission Date: 20120608
  Serious: Yes (Other)
  Sender: FDA-Public Use
  Company Number: US-BAYER-2011-020095

PATIENT
  Age: 39 Year
  Sex: Female
  Weight: 81.633 kg

DRUGS (3)
  1. BUPROPION HYDROCHLORIDE [Concomitant]
     Indication: DEPRESSION
     Dosage: UNK
     Dates: start: 20070101
  2. YAZ [Suspect]
     Indication: ACNE
     Dosage: UNK
     Dates: start: 20090801
  3. INHALER [Concomitant]
     Indication: ASTHMA
     Dosage: UNK

REACTIONS (2)
  - GALLBLADDER NON-FUNCTIONING [None]
  - CHOLELITHIASIS [None]
